FAERS Safety Report 21905376 (Version 1)
Quarter: 2023Q1

REPORT INFORMATION
  Report Type: Spontaneous
  Country: US (occurrence: US)
  Receive Date: 20230124
  Receipt Date: 20230124
  Transmission Date: 20230418
  Serious: No
  Sender: FDA-Public Use
  Company Number: US-INCYTE CORPORATION-2023IN000410

PATIENT

DRUGS (2)
  1. JAKAFI [Suspect]
     Active Substance: RUXOLITINIB
     Dosage: UNK, BID
     Route: 065
  2. VONJO [Suspect]
     Active Substance: PACRITINIB
     Route: 065

REACTIONS (8)
  - Back pain [Unknown]
  - Influenza [Unknown]
  - Chills [Unknown]
  - Decreased activity [Unknown]
  - Epistaxis [Unknown]
  - Uterine disorder [Unknown]
  - Intentional product use issue [Unknown]
  - Dyspnoea [Unknown]
